FAERS Safety Report 15815375 (Version 1)
Quarter: 2019Q1

REPORT INFORMATION
  Report Type: Spontaneous
  Country: US (occurrence: US)
  Receive Date: 20190112
  Receipt Date: 20190112
  Transmission Date: 20190417
  Serious: No
  Sender: FDA-Public Use
  Company Number: US-TEVA-2018-US-993283

PATIENT

DRUGS (2)
  1. ENOXAPARIN [Suspect]
     Active Substance: ENOXAPARIN
  2. ENOXAPARIN [Suspect]
     Active Substance: ENOXAPARIN

REACTIONS (6)
  - Product substitution issue [Unknown]
  - Needle issue [Unknown]
  - Asthenia [Unknown]
  - Injection site bruising [Recovered/Resolved]
  - Malaise [Unknown]
  - Product use complaint [Unknown]
